FAERS Safety Report 25716494 (Version 1)
Quarter: 2025Q3

REPORT INFORMATION
  Report Type: Spontaneous
  Country: US (occurrence: None)
  Receive Date: 20250822
  Receipt Date: 20250822
  Transmission Date: 20251020
  Serious: Yes (Life-Threatening, Hospitalization, Other)
  Sender: FDA-CTU
  Company Number: None

PATIENT
  Age: 57 Year
  Sex: Male
  Weight: 85.5 kg

DRUGS (3)
  1. TIRZEPATIDE [Suspect]
     Active Substance: TIRZEPATIDE
  2. KEPPRA [Concomitant]
     Active Substance: LEVETIRACETAM
  3. Tylenol/ Advil [Concomitant]

REACTIONS (2)
  - Seizure [None]
  - Upper limb fracture [None]

NARRATIVE: CASE EVENT DATE: 20250324
